FAERS Safety Report 6223181-6 (Version None)
Quarter: 2009Q2

REPORT INFORMATION
  Report Type: 
  Country: None (occurrence: None)
  Receive Date: 20090611
  Receipt Date: 20071127
  Transmission Date: 20091009
  Serious: Yes (Other)
  Sender: FDA-Public Use
  Company Number: US-SANOFI-SYNTHELABO-A03200706103

PATIENT
  Sex: Male
  Weight: 68 kg

DRUGS (4)
  1. AMBIEN [Suspect]
     Indication: INSOMNIA
     Dosage: UNK
     Route: 048
     Dates: start: 20030901, end: 20071017
  2. SERTRALINE HCL [Concomitant]
     Route: 048
  3. OMEPRAZOLE [Concomitant]
     Route: 048
  4. ZOLPIDEM [Suspect]
     Indication: DRUG USE FOR UNKNOWN INDICATION
     Route: 048
     Dates: start: 20071016, end: 20071017

REACTIONS (4)
  - CARDIAC FLUTTER [None]
  - DRUG INEFFECTIVE [None]
  - SOMNOLENCE [None]
  - THERAPY REGIMEN CHANGED [None]
